FAERS Safety Report 19105046 (Version 1)
Quarter: 2021Q2

REPORT INFORMATION
  Report Type: Spontaneous
  Country: FR (occurrence: FR)
  Receive Date: 20210408
  Receipt Date: 20210408
  Transmission Date: 20210717
  Serious: Yes (Hospitalization, Other)
  Sender: FDA-Public Use
  Company Number: FR-SA-2021SA113696

PATIENT
  Age: 83 Year
  Sex: Male
  Weight: 74 kg

DRUGS (3)
  1. DITROPAN [Suspect]
     Active Substance: OXYBUTYNIN CHLORIDE
     Indication: PRODUCT USED FOR UNKNOWN INDICATION
     Dosage: 5 MG, ONCE DAILY
     Route: 048
     Dates: start: 20201116, end: 202101
  2. FORTUM [CEFTAZIDIME PENTAHYDRATE] [Suspect]
     Active Substance: CEFTAZIDIME
     Indication: POSTOPERATIVE WOUND INFECTION
     Dosage: 6 G, ONCE DAILY (6 G/ 24 H)
     Route: 041
     Dates: start: 20201119, end: 20210110
  3. MECIR LP 0,4 MG [Suspect]
     Active Substance: TAMSULOSIN HYDROCHLORIDE
     Indication: PRODUCT USED FOR UNKNOWN INDICATION
     Dosage: 0.4 MG, ONCE DAILY
     Route: 048
     Dates: start: 20201119, end: 202101

REACTIONS (1)
  - Neutropenia [Recovered/Resolved]

NARRATIVE: CASE EVENT DATE: 20210110
